FAERS Safety Report 13917426 (Version 2)
Quarter: 2017Q4

REPORT INFORMATION
  Report Type: Spontaneous
  Country: IT (occurrence: IT)
  Receive Date: 20170829
  Receipt Date: 20171010
  Transmission Date: 20180320
  Serious: Yes (Hospitalization, Other)
  Sender: FDA-Public Use
  Company Number: IT-NAPPMUNDI-GBR-2017-0048223

PATIENT

DRUGS (2)
  1. TARGIN [Suspect]
     Active Substance: NALOXONE HYDROCHLORIDE\OXYCODONE HYDROCHLORIDE
     Indication: DRUG ABUSER
     Dosage: 1 TABLET, SINGLE (STRENGTH 10/5 MG)
     Route: 042
     Dates: start: 20170625, end: 20170725
  2. METHADONE [Concomitant]
     Active Substance: METHADONE HYDROCHLORIDE

REACTIONS (6)
  - Product use issue [Unknown]
  - Drug abuse [Unknown]
  - Intentional product misuse [Unknown]
  - Burning sensation [Unknown]
  - Malaise [Unknown]
  - Paraesthesia [Unknown]

NARRATIVE: CASE EVENT DATE: 20170625
